FAERS Safety Report 15732704 (Version 1)
Quarter: 2018Q4

REPORT INFORMATION
  Report Type: Spontaneous
  Country: US (occurrence: US)
  Receive Date: 20181217
  Receipt Date: 20181217
  Transmission Date: 20190205
  Serious: No
  Sender: FDA-Public Use
  Company Number: US-BAYER-2018-234197

PATIENT
  Sex: Female
  Weight: 54.42 kg

DRUGS (1)
  1. ALEVE [Suspect]
     Active Substance: NAPROXEN SODIUM
     Dosage: 4 DF, QD

REACTIONS (7)
  - Vomiting [Unknown]
  - Nausea [Unknown]
  - Photophobia [Unknown]
  - Incorrect dosage administered [Unknown]
  - Product use issue [Unknown]
  - Hypoaesthesia [Unknown]
  - Pain in extremity [Unknown]

NARRATIVE: CASE EVENT DATE: 2018
